FAERS Safety Report 8948089 (Version 1)
Quarter: 2012Q4

REPORT INFORMATION
  Report Type: Spontaneous
  Country: US (occurrence: None)
  Receive Date: 20121203
  Receipt Date: 20121203
  Transmission Date: 20130627
  Serious: No
  Sender: FDA-Public Use
  Company Number: None

PATIENT
  Age: 58 Year
  Sex: Female
  Weight: 81.65 kg

DRUGS (2)
  1. CITALOPRAM [Suspect]
     Indication: MAJOR DEPRESSION
     Route: 048
     Dates: start: 20121124, end: 20121201
  2. CITALOPRAM [Suspect]
     Indication: AFFECTIVE DISORDER
     Route: 048
     Dates: start: 20121124, end: 20121201

REACTIONS (1)
  - Anger [None]
